FAERS Safety Report 9334790 (Version 2)
Quarter: 2013Q4

REPORT INFORMATION
  Report Type: Spontaneous
  Country: US (occurrence: US)
  Receive Date: 20130606
  Receipt Date: 20131008
  Transmission Date: 20140711
  Serious: Yes (Other)
  Sender: FDA-Public Use
  Company Number: US-AMGEN-USASP2013031273

PATIENT
  Age: 75 Year
  Sex: Male
  Weight: 94.33 kg

DRUGS (6)
  1. XGEVA [Suspect]
     Indication: PROSTATE CANCER
     Dosage: 120 MG, UNK
     Dates: start: 20120512
  2. TAXOTERE [Concomitant]
     Indication: PROSTATE CANCER
     Dosage: 120 MG, UNK
     Route: 042
     Dates: start: 20130417
  3. CALCIUM [Concomitant]
     Dosage: 600 MG, BID
     Route: 042
  4. LASIX                              /00032601/ [Concomitant]
     Dosage: 20 MG, QD
     Route: 048
  5. CARVEDILOL [Concomitant]
     Dosage: 6.2 UNK, BID
     Route: 048
  6. LISINOPRIL [Concomitant]
     Dosage: 1.5 MG, QD
     Route: 048

REACTIONS (1)
  - Hypocalcaemia [Unknown]
